FAERS Safety Report 10195624 (Version 2)
Quarter: 2014Q3

REPORT INFORMATION
  Report Type: Report from Study
  Country: HU (occurrence: HU)
  Receive Date: 20140527
  Receipt Date: 20140919
  Transmission Date: 20150326
  Serious: Yes (Hospitalization, Disabling)
  Sender: FDA-Public Use
  Company Number: HU-ROCHE-1408323

PATIENT
  Age: 85 Year
  Sex: Female
  Weight: 82 kg

DRUGS (2)
  1. RANIBIZUMAB [Suspect]
     Active Substance: RANIBIZUMAB
     Dosage: MOST RECENT DOSE OF DRUG PRIOR TO SAE ON 17/APR/2014.
     Route: 050
     Dates: start: 20140417, end: 20140417
  2. RANIBIZUMAB [Suspect]
     Active Substance: RANIBIZUMAB
     Indication: PRODUCT USED FOR UNKNOWN INDICATION
     Route: 050
     Dates: start: 20120223

REACTIONS (4)
  - Cerebrovascular accident [Unknown]
  - Carotid artery occlusion [Recovered/Resolved with Sequelae]
  - Cerebral artery embolism [Unknown]
  - Cerebral artery occlusion [Unknown]

NARRATIVE: CASE EVENT DATE: 20140511
